FAERS Safety Report 13284617 (Version 1)
Quarter: 2017Q1

REPORT INFORMATION
  Report Type: Report from Study
  Country: US (occurrence: US)
  Receive Date: 20170301
  Receipt Date: 20170301
  Transmission Date: 20170428
  Serious: Yes (Death, Hospitalization)
  Sender: FDA-Public Use
  Company Number: US-MUNDIPHARMA DS AND PHARMACOVIGILANCE-USA-2017-0136858

PATIENT
  Age: 56 Year
  Sex: Male

DRUGS (2)
  1. METHADONE [Suspect]
     Active Substance: METHADONE HYDROCHLORIDE
     Indication: PAIN
     Dosage: UNK
     Route: 048
     Dates: start: 201601, end: 20160406
  2. OXYCODONE HYDROCHLORIDE. [Suspect]
     Active Substance: OXYCODONE HYDROCHLORIDE
     Indication: PAIN
     Dosage: 80 MG 2 TABLETS, TID
     Route: 048
     Dates: start: 2004, end: 201601

REACTIONS (4)
  - Blister [Unknown]
  - Tremor [Unknown]
  - Sepsis [Fatal]
  - Delirium [Unknown]

NARRATIVE: CASE EVENT DATE: 201603
